FAERS Safety Report 10064506 (Version 2)
Quarter: 2014Q2

REPORT INFORMATION
  Report Type: Spontaneous
  Country: JP (occurrence: JP)
  Receive Date: 20140408
  Receipt Date: 20140501
  Transmission Date: 20141212
  Serious: Yes (Hospitalization)
  Sender: FDA-Public Use
  Company Number: JP-ASTELLAS-2014JP003186

PATIENT
  Age: 76 Year
  Sex: Female

DRUGS (8)
  1. BETANIS [Suspect]
     Indication: HYPERTONIC BLADDER
     Route: 048
     Dates: start: 201401
  2. HARNAL [Suspect]
     Dosage: 0.1 MG, UNKNOWN FREQ.
     Route: 048
     Dates: start: 201401
  3. MYSLEE [Suspect]
     Indication: SLEEP DISORDER
     Route: 048
     Dates: start: 2013
  4. EBRANTIL                           /00631801/ [Suspect]
     Indication: PRODUCT USED FOR UNKNOWN INDICATION
     Route: 048
     Dates: start: 201401, end: 20140328
  5. NEXIUM                             /01479302/ [Suspect]
     Indication: PRODUCT USED FOR UNKNOWN INDICATION
     Route: 048
     Dates: start: 2013
  6. OLMETEC [Suspect]
     Indication: PRODUCT USED FOR UNKNOWN INDICATION
     Route: 048
     Dates: start: 2013
  7. RAMIAN [Suspect]
     Indication: PRODUCT USED FOR UNKNOWN INDICATION
     Route: 048
     Dates: start: 2013
  8. PLETAAL [Suspect]
     Indication: PRODUCT USED FOR UNKNOWN INDICATION
     Route: 048
     Dates: start: 2013

REACTIONS (3)
  - Transient ischaemic attack [Recovered/Resolved]
  - Loss of consciousness [Recovered/Resolved]
  - Off label use [Unknown]
